FAERS Safety Report 4847999-7 (Version None)
Quarter: 2005Q4

REPORT INFORMATION
  Report Type: 
  Country: None (occurrence: None)
  Receive Date: 20051208
  Receipt Date: 20051129
  Transmission Date: 20060501
  Serious: Yes (Hospitalization)
  Sender: FDA-Public Use
  Company Number: US-KINGPHARMUSA00001-K200501537

PATIENT
  Age: 81 Year
  Sex: Male

DRUGS (17)
  1. FLORINEF [Suspect]
     Indication: FALL
  2. BRICANYL [Concomitant]
     Dosage: .5 MG, UNK
  3. GLYTRIN [Concomitant]
     Dosage: .4 MG, UNK
     Route: 060
  4. LORATADIN [Concomitant]
     Dosage: 10 MG, UNK
  5. OMEPRAZOL ^ACYFABRIK^ [Concomitant]
     Dosage: 20 MG, UNK
  6. ^SESOLID^ [Concomitant]
     Dosage: 2 MG, UNK
  7. PREDNISOLONE [Concomitant]
     Dosage: 5 MG, UNK
  8. DIGOXIN [Concomitant]
     Dosage: .13 MG, UNK
  9. ACETAMINOPHEN [Concomitant]
     Dosage: 500 MG, UNK
  10. VERAPAMIL [Concomitant]
     Dosage: 40 MG, UNK
  11. TROMBYL [Concomitant]
     Dosage: 160 MG, UNK
  12. ACETYLCYSTEIN ASTRAZENECA [Concomitant]
     Dosage: 200 MG, UNK
  13. ATROVENT [Concomitant]
     Route: 045
  14. TRIOBE [Concomitant]
  15. COZAAR [Concomitant]
     Dosage: 12.5 MG, UNK
  16. OPTINATE [Concomitant]
  17. OPTINEM [Concomitant]

REACTIONS (2)
  - CONFUSIONAL STATE [None]
  - PARANOIA [None]
